FAERS Safety Report 4521623-5 (Version None)
Quarter: 2004Q4

REPORT INFORMATION
  Report Type: 
  Country: None (occurrence: None)
  Receive Date: 20041208
  Receipt Date: 20041208
  Transmission Date: 20050328
  Serious: Yes (Hospitalization)
  Sender: FDA-Public Use
  Company Number: None

PATIENT
  Age: 54 Year
  Sex: Male

DRUGS (1)
  1. DEXAMETHASONE [Suspect]
     Indication: SPINAL CORD INJURY
     Dosage: 24MG  Q6H    INTRAVENOU
     Route: 042
     Dates: start: 20041024, end: 20041027

REACTIONS (1)
  - GASTROINTESTINAL HAEMORRHAGE [None]
